FAERS Safety Report 21135108 (Version 1)
Quarter: 2022Q3

REPORT INFORMATION
  Report Type: Spontaneous
  Country: US (occurrence: US)
  Receive Date: 20220727
  Receipt Date: 20220727
  Transmission Date: 20221026
  Serious: No
  Sender: FDA-Public Use
  Company Number: US-ENDO PHARMACEUTICALS INC-2022-003364

PATIENT
  Sex: Male

DRUGS (24)
  1. EDEX [Suspect]
     Active Substance: ALPROSTADIL
     Indication: Product used for unknown indication
     Dosage: UNK UNKNOWN, UNKNOWN (FIFTH TIME)
     Route: 065
  2. EDEX [Suspect]
     Active Substance: ALPROSTADIL
     Indication: Product used for unknown indication
     Dosage: UNK UNKNOWN, UNKNOWN (FIFTH TIME)
     Route: 065
  3. EDEX [Suspect]
     Active Substance: ALPROSTADIL
     Indication: Product used for unknown indication
     Dosage: UNK UNKNOWN, UNKNOWN (FIFTH TIME)
     Route: 065
  4. EDEX [Suspect]
     Active Substance: ALPROSTADIL
     Indication: Product used for unknown indication
     Dosage: UNK UNKNOWN, UNKNOWN (FIFTH TIME)
     Route: 065
  5. EDEX [Suspect]
     Active Substance: ALPROSTADIL
     Dosage: UNK UNKNOWN, UNKNOWN (SIXTH TIME)
     Route: 065
  6. EDEX [Suspect]
     Active Substance: ALPROSTADIL
     Dosage: UNK UNKNOWN, UNKNOWN (SIXTH TIME)
     Route: 065
  7. EDEX [Suspect]
     Active Substance: ALPROSTADIL
     Dosage: UNK UNKNOWN, UNKNOWN (SIXTH TIME)
     Route: 065
  8. EDEX [Suspect]
     Active Substance: ALPROSTADIL
     Dosage: UNK UNKNOWN, UNKNOWN (SIXTH TIME)
     Route: 065
  9. EDEX [Suspect]
     Active Substance: ALPROSTADIL
     Dosage: UNK UNKNOWN, UNKNOWN (FIRST TIME)
     Route: 065
  10. EDEX [Suspect]
     Active Substance: ALPROSTADIL
     Dosage: UNK UNKNOWN, UNKNOWN (FIRST TIME)
     Route: 065
  11. EDEX [Suspect]
     Active Substance: ALPROSTADIL
     Dosage: UNK UNKNOWN, UNKNOWN (FIRST TIME)
     Route: 065
  12. EDEX [Suspect]
     Active Substance: ALPROSTADIL
     Dosage: UNK UNKNOWN, UNKNOWN (FIRST TIME)
     Route: 065
  13. EDEX [Suspect]
     Active Substance: ALPROSTADIL
     Dosage: UNK UNKNOWN, UNKNOWN (SECOND TIME)
     Route: 065
  14. EDEX [Suspect]
     Active Substance: ALPROSTADIL
     Dosage: UNK UNKNOWN, UNKNOWN (SECOND TIME)
     Route: 065
  15. EDEX [Suspect]
     Active Substance: ALPROSTADIL
     Dosage: UNK UNKNOWN, UNKNOWN (SECOND TIME)
     Route: 065
  16. EDEX [Suspect]
     Active Substance: ALPROSTADIL
     Dosage: UNK UNKNOWN, UNKNOWN (SECOND TIME)
     Route: 065
  17. EDEX [Suspect]
     Active Substance: ALPROSTADIL
     Dosage: UNK UNKNOWN, UNKNOWN (THIRD TIME)
     Route: 065
  18. EDEX [Suspect]
     Active Substance: ALPROSTADIL
     Dosage: UNK UNKNOWN, UNKNOWN (THIRD TIME)
     Route: 065
  19. EDEX [Suspect]
     Active Substance: ALPROSTADIL
     Dosage: UNK UNKNOWN, UNKNOWN (THIRD TIME)
     Route: 065
  20. EDEX [Suspect]
     Active Substance: ALPROSTADIL
     Dosage: UNK UNKNOWN, UNKNOWN (THIRD TIME)
     Route: 065
  21. EDEX [Suspect]
     Active Substance: ALPROSTADIL
     Dosage: UNK UNKNOWN, UNKNOWN (FOURTH TIME)
     Route: 065
  22. EDEX [Suspect]
     Active Substance: ALPROSTADIL
     Dosage: UNK UNKNOWN, UNKNOWN (FOURTH TIME)
     Route: 065
  23. EDEX [Suspect]
     Active Substance: ALPROSTADIL
     Dosage: UNK UNKNOWN, UNKNOWN (FOURTH TIME)
     Route: 065
  24. EDEX [Suspect]
     Active Substance: ALPROSTADIL
     Dosage: UNK UNKNOWN, UNKNOWN (FOURTH TIME)
     Route: 065

REACTIONS (1)
  - Drug ineffective [Unknown]
